FAERS Safety Report 5724365-3 (Version None)
Quarter: 2008Q2

REPORT INFORMATION
  Report Type: 
  Country: None (occurrence: None)
  Receive Date: 20080430
  Receipt Date: 20080421
  Transmission Date: 20081010
  Serious: Yes (Other)
  Sender: FDA-Public Use
  Company Number: US-PFIZER INC-2008035295

PATIENT
  Sex: Male
  Weight: 113 kg

DRUGS (3)
  1. SUTENT [Suspect]
     Indication: RENAL CELL CARCINOMA
  2. SUTENT [Suspect]
     Dates: start: 20061201, end: 20070101
  3. COUMADIN [Concomitant]

REACTIONS (1)
  - RENAL FAILURE [None]
